FAERS Safety Report 14301706 (Version 1)
Quarter: 2017Q4

REPORT INFORMATION
  Report Type: Report from Study
  Country: JP (occurrence: JP)
  Receive Date: 20171219
  Receipt Date: 20171219
  Transmission Date: 20180321
  Serious: Yes (Hospitalization)
  Sender: FDA-Public Use
  Company Number: JP-ELI_LILLY_AND_COMPANY-JP201712008223

PATIENT
  Age: 67 Year
  Sex: Male
  Weight: 67 kg

DRUGS (8)
  1. NO DRUG NAME [Concomitant]
     Dosage: 20 MG, DAILY
     Route: 048
  2. NO DRUG NAME [Concomitant]
     Dosage: UNK
     Route: 048
  3. NO DRUG NAME [Concomitant]
     Dosage: 100 MG, DAILY
     Route: 048
  4. CARVEDILOL. [Concomitant]
     Active Substance: CARVEDILOL
     Dosage: UNK
     Route: 048
  5. PRASUGREL HYDROCHLORIDE [Suspect]
     Active Substance: PRASUGREL HYDROCHLORIDE
     Indication: ACUTE MYOCARDIAL INFARCTION
     Dosage: 3.75 MG, DAILY
     Route: 065
     Dates: end: 20161128
  6. HEPARIN [Concomitant]
     Active Substance: HEPARIN SODIUM
     Dosage: 8000 IU, UNK
     Route: 065
  7. NO DRUG NAME [Concomitant]
     Dosage: UNK
     Route: 048
  8. NO DRUG NAME [Concomitant]
     Dosage: UNK
     Route: 048

REACTIONS (1)
  - Lacunar infarction [Recovering/Resolving]

NARRATIVE: CASE EVENT DATE: 20170929
